FAERS Safety Report 15896256 (Version 1)
Quarter: 2019Q1

REPORT INFORMATION
  Report Type: Spontaneous
  Country: US (occurrence: US)
  Receive Date: 20190131
  Receipt Date: 20190131
  Transmission Date: 20190417
  Serious: Yes (Other)
  Sender: FDA-Public Use
  Company Number: PHEH2019US004017

PATIENT
  Age: 85 Year
  Sex: Male

DRUGS (1)
  1. BUDESONIDE. [Suspect]
     Active Substance: BUDESONIDE
     Indication: PRODUCT USED FOR UNKNOWN INDICATION
     Dosage: UNK
     Route: 055

REACTIONS (6)
  - Oropharyngeal pain [Unknown]
  - Dyspnoea [Unknown]
  - Retching [Unknown]
  - Pleuritic pain [Unknown]
  - Cough [Unknown]
  - Weight decreased [Unknown]
